FAERS Safety Report 13085966 (Version 2)
Quarter: 2017Q2

REPORT INFORMATION
  Report Type: Report from Study
  Country: CA (occurrence: CA)
  Receive Date: 20170104
  Receipt Date: 20170425
  Transmission Date: 20170830
  Serious: Yes (Other)
  Sender: FDA-Public Use
  Company Number: CA-BIOGEN-2016BI00333740

PATIENT
  Age: 57 Year
  Sex: Male

DRUGS (2)
  1. TECFIDERA [Suspect]
     Active Substance: DIMETHYL FUMARATE
     Route: 048
     Dates: start: 201612
  2. TECFIDERA [Suspect]
     Active Substance: DIMETHYL FUMARATE
     Indication: MULTIPLE SCLEROSIS
     Dosage: TITRATED DOSE PER MD
     Route: 048
     Dates: start: 20161203

REACTIONS (15)
  - Nerve root compression [Unknown]
  - Flatulence [Unknown]
  - Eructation [Unknown]
  - Abdominal pain [Unknown]
  - Flushing [Recovered/Resolved]
  - Back pain [Unknown]
  - Abnormal faeces [Unknown]
  - Balance disorder [Not Recovered/Not Resolved]
  - Incorrect dose administered [Recovered/Resolved]
  - Large intestine polyp [Unknown]
  - Monoplegia [Unknown]
  - Arthritis [Unknown]
  - Intervertebral disc space narrowing [Unknown]
  - Abdominal distension [Unknown]
  - Nausea [Recovered/Resolved]

NARRATIVE: CASE EVENT DATE: 201612
